FAERS Safety Report 4310058-6 (Version None)
Quarter: 2004Q1

REPORT INFORMATION
  Report Type: 
  Country: None (occurrence: None)
  Receive Date: 20040301
  Receipt Date: 20031230
  Transmission Date: 20041129
  Serious: No
  Sender: FDA-Public Use
  Company Number: WAES 0310USA01498

PATIENT
  Age: 68 Year
  Sex: Female

DRUGS (2)
  1. ZETIA [Suspect]
     Indication: BLOOD CHOLESTEROL INCREASED
     Dosage: 10 MG/ ;  10 MG/QOD   :     DAILY/PO
     Route: 048
     Dates: start: 20030810, end: 20030901
  2. ZETIA [Suspect]
     Indication: BLOOD CHOLESTEROL INCREASED
     Dosage: 10 MG/ ;  10 MG/QOD   :     DAILY/PO
     Route: 048
     Dates: start: 20030901, end: 20031007

REACTIONS (3)
  - GROIN PAIN [None]
  - MEDICATION ERROR [None]
  - PAIN IN EXTREMITY [None]
